FAERS Safety Report 6891241-2 (Version None)
Quarter: 2010Q3

REPORT INFORMATION
  Report Type: 
  Country: None (occurrence: None)
  Receive Date: 20100731
  Receipt Date: 20090709
  Transmission Date: 20110219
  Serious: No
  Sender: FDA-Public Use
  Company Number: US-PFIZER INC-2009238413

PATIENT
  Age: 56 Year
  Sex: Female
  Weight: 54.42 kg

DRUGS (4)
  1. LIPITOR [Suspect]
     Indication: HYPERCHOLESTEROLAEMIA
     Dosage: UNK
     Route: 048
  2. OXYMORPHONE [Suspect]
     Indication: PAIN
     Dosage: 40 MG, 2X/DAY
     Route: 048
     Dates: start: 20090703
  3. METHADONE [Concomitant]
     Indication: PAIN
     Dosage: UNK MG, UNK
  4. BENICAR [Concomitant]
     Indication: HYPERTENSION
     Dosage: UNK
     Route: 048

REACTIONS (2)
  - DRY EYE [None]
  - RASH [None]
